FAERS Safety Report 5171694-0 (Version None)
Quarter: 2006Q4

REPORT INFORMATION
  Report Type: 
  Country: None (occurrence: None)
  Receive Date: 20061205
  Receipt Date: 20061121
  Transmission Date: 20070319
  Serious: Yes (Hospitalization)
  Sender: FDA-Public Use
  Company Number: S06-USA-04921-01

PATIENT

DRUGS (2)
  1. LEXAPRO [Suspect]
     Dates: start: 20061101
  2. PROZAC [Suspect]
     Dates: end: 20061101

REACTIONS (2)
  - SPEECH DISORDER [None]
  - TREMOR [None]
